FAERS Safety Report 7270634-8 (Version None)
Quarter: 2011Q1

REPORT INFORMATION
  Report Type: 
  Country: None (occurrence: None)
  Receive Date: 20110202
  Receipt Date: 20101228
  Transmission Date: 20110831
  Serious: Yes (Other)
  Sender: FDA-Public Use
  Company Number: A0902208B

PATIENT
  Age: 27 Year
  Sex: Female

DRUGS (7)
  1. ZOFRAN [Concomitant]
  2. PRENATAL VITAMINS [Concomitant]
  3. ALCOHOL [Concomitant]
  4. COMBIVIR [Suspect]
     Indication: HIV INFECTION
     Dosage: 2TAB PER DAY
     Route: 048
     Dates: start: 20100617
  5. KALETRA [Suspect]
     Indication: HIV INFECTION
     Dosage: 4TAB PER DAY
     Route: 048
     Dates: start: 20100617
  6. RETROVIR [Concomitant]
     Indication: HIV INFECTION
     Dosage: 1MGKH PER DAY
     Route: 042
     Dates: start: 20101126, end: 20101126
  7. TRIMETHOPRIM + SULFAMETHOXAZOLE [Concomitant]

REACTIONS (2)
  - DRUG EXPOSURE DURING PREGNANCY [None]
  - DIABETES MELLITUS [None]
